FAERS Safety Report 11170523 (Version 2)
Quarter: 2015Q2

REPORT INFORMATION
  Report Type: Spontaneous
  Country: JP (occurrence: None)
  Receive Date: 20150604
  Receipt Date: 20150617
  Transmission Date: 20150821
  Serious: Yes (Hospitalization)
  Sender: FDA-Public Use
  Company Number: JP2015JPN073239

PATIENT
  Sex: Male

DRUGS (6)
  1. EPZICOM [Suspect]
     Active Substance: ABACAVIR SULFATE\LAMIVUDINE
     Indication: HIV INFECTION
     Route: 048
  2. EPIVIR [Suspect]
     Active Substance: LAMIVUDINE
     Indication: HIV INFECTION
     Route: 048
  3. TIVICAY [Suspect]
     Active Substance: DOLUTEGRAVIR SODIUM
     Indication: HIV INFECTION
     Route: 048
  4. KALETRA [Concomitant]
     Active Substance: LOPINAVIR\RITONAVIR
  5. VIREAD (TENOFOVIR DISOPROXIL FUMARATE) [Concomitant]
  6. ZERIT (STAVUDINE) [Concomitant]

REACTIONS (2)
  - Rash [None]
  - Erythema [None]
